FAERS Safety Report 4764320-3 (Version None)
Quarter: 2005Q3

REPORT INFORMATION
  Report Type: 
  Country: None (occurrence: None)
  Receive Date: 20050907
  Receipt Date: 20050907
  Transmission Date: 20060218
  Serious: Yes (Death)
  Sender: FDA-Public Use
  Company Number: None

PATIENT
  Age: 68 Year
  Sex: Male
  Weight: 90 kg

DRUGS (16)
  1. THALIDOMIDE [Suspect]
     Indication: PROSTATE CANCER
     Dosage: 100 MG PO
     Route: 048
     Dates: start: 20050701, end: 20050724
  2. IMATINIB [Suspect]
     Indication: PROSTATE CANCER
     Dosage: 200 MG/PO
     Route: 048
     Dates: start: 20050701, end: 20050724
  3. ALBUTEROL [Concomitant]
  4. CALCIUM GLUCONATE [Concomitant]
  5. VITAMIN D [Concomitant]
  6. DOCUSATE [Concomitant]
  7. HYDROCHLOROTHIAZIDE [Concomitant]
  8. IMATINIB [Concomitant]
  9. MORPHINE [Concomitant]
  10. NAPROXEN [Concomitant]
  11. OXYCODONE HCL [Concomitant]
  12. PREDNISONE [Concomitant]
  13. RANITIDINE HCL [Concomitant]
  14. SENNOSIDES [Concomitant]
  15. THALIDOMIDE [Concomitant]
  16. NUTRITIONAL SUPPLEMENT ENSURE [Concomitant]

REACTIONS (5)
  - CARDIO-RESPIRATORY ARREST [None]
  - ILEUS [None]
  - INFECTION [None]
  - LOSS OF CONSCIOUSNESS [None]
  - PULMONARY EMBOLISM [None]
